FAERS Safety Report 25251902 (Version 3)
Quarter: 2025Q2

REPORT INFORMATION
  Report Type: Report from Study
  Country: US (occurrence: US)
  Receive Date: 20250429
  Receipt Date: 20250526
  Transmission Date: 20250717
  Serious: Yes (Other)
  Sender: ABBVIE
  Company Number: US-ABBVIE-6247146

PATIENT
  Age: 64 Year
  Sex: Female
  Weight: 165 kg

DRUGS (6)
  1. RINVOQ [Suspect]
     Active Substance: UPADACITINIB
     Indication: Rheumatoid arthritis
     Route: 048
     Dates: start: 20240726
  2. CHONDROITIN SULFATE A\GLUCOSAMINE [Concomitant]
     Active Substance: CHONDROITIN SULFATE A\GLUCOSAMINE
     Indication: Product used for unknown indication
     Dosage: 1500
     Route: 048
  3. FLUTICASONE [Concomitant]
     Active Substance: FLUTICASONE
     Indication: Product used for unknown indication
     Route: 045
  4. LOSARTAN [Concomitant]
     Active Substance: LOSARTAN
     Indication: Ataxia
     Dosage: 25 PILL
     Route: 048
  5. VITAMIN D3 [Concomitant]
     Active Substance: CHOLECALCIFEROL
     Indication: Product used for unknown indication
     Route: 048
  6. GABAPENTIN [Concomitant]
     Active Substance: GABAPENTIN
     Indication: Dizziness
     Route: 048

REACTIONS (4)
  - Rotator cuff syndrome [Not Recovered/Not Resolved]
  - Fall [Not Recovered/Not Resolved]
  - Nerve block [Unknown]
  - Arthralgia [Not Recovered/Not Resolved]

NARRATIVE: CASE EVENT DATE: 20240101
